FAERS Safety Report 19242212 (Version 1)
Quarter: 2021Q2

REPORT INFORMATION
  Report Type: Spontaneous
  Country: US (occurrence: US)
  Receive Date: 20210511
  Receipt Date: 20210511
  Transmission Date: 20210717
  Serious: No
  Sender: FDA-Public Use
  Company Number: None

PATIENT
  Age: 52 Year
  Sex: Female

DRUGS (1)
  1. ETOPOSIDE (VP?16) 50MG [Suspect]
     Active Substance: ETOPOSIDE
     Indication: BREAST CANCER
     Dates: start: 20201217

REACTIONS (2)
  - Fatigue [None]
  - Headache [None]
